FAERS Safety Report 7690213-8 (Version None)
Quarter: 2011Q3

REPORT INFORMATION
  Report Type: 
  Country: None (occurrence: None)
  Receive Date: 20110812
  Receipt Date: 20110810
  Transmission Date: 20111222
  Serious: Yes (Hospitalization)
  Sender: FDA-Public Use
  Company Number: 2011SP037512

PATIENT
  Age: 33 Year
  Sex: Female

DRUGS (3)
  1. PUREGON (FOLLITROPIN BETA /01348901/) [Suspect]
     Indication: PRODUCT USED FOR UNKNOWN INDICATION
     Dosage: SC
     Route: 058
     Dates: start: 20110618, end: 20110628
  2. CHORIONIC GONADOTROPIN [Suspect]
     Indication: PRODUCT USED FOR UNKNOWN INDICATION
     Dosage: 5000 IU;IM
     Route: 030
     Dates: start: 20110629, end: 20110629
  3. GANIRELIX ACETATE INJECTION [Suspect]
     Indication: PRODUCT USED FOR UNKNOWN INDICATION
     Dosage: SC
     Route: 058
     Dates: start: 20110626, end: 20110628

REACTIONS (2)
  - OVARIAN HYPERSTIMULATION SYNDROME [None]
  - HYPONATRAEMIA [None]
